FAERS Safety Report 4757290-5 (Version None)
Quarter: 2005Q3

REPORT INFORMATION
  Report Type: 
  Country: None (occurrence: None)
  Receive Date: 20050829
  Receipt Date: 20050811
  Transmission Date: 20060218
  Serious: Yes (Hospitalization)
  Sender: FDA-Public Use
  Company Number: COT_0152_2005

PATIENT
  Age: 32 Year
  Sex: Male
  Weight: 83.0083 kg

DRUGS (4)
  1. VENTAVIS [Suspect]
     Indication: PULMONARY HYPERTENSION
     Dosage: 5 MCG 6XD IH
     Route: 055
  2. TRACLEER [Concomitant]
  3. LANOXIN [Concomitant]
  4. METOPROLOL [Concomitant]

REACTIONS (1)
  - RENAL FAILURE [None]
